FAERS Safety Report 7305503-8 (Version None)
Quarter: 2011Q1

REPORT INFORMATION
  Report Type: 
  Country: None (occurrence: None)
  Receive Date: 20110222
  Receipt Date: 20110126
  Transmission Date: 20110831
  Serious: No
  Sender: FDA-Public Use
  Company Number: US-B.I. PHARMACEUTICALS,INC./RIDGEFIELD-2011-BP-02683BP

PATIENT
  Age: 76 Year
  Sex: Male

DRUGS (8)
  1. PRADAXA [Suspect]
     Indication: ATRIAL FIBRILLATION
     Dosage: 300 MG
     Route: 048
     Dates: start: 20101201
  2. AMLODIPINE [Concomitant]
     Indication: BLOOD PRESSURE
     Dosage: 10 MG
  3. SERTALINE [Concomitant]
     Dosage: 10 MG
  4. DIAVAN [Concomitant]
     Indication: BLOOD PRESSURE
     Dosage: 160 MG
  5. METOPROLOL [Concomitant]
     Indication: CARDIAC DISORDER
     Dosage: 50 MG
  6. HYDROXYZINE [Concomitant]
     Indication: RASH
     Dosage: 10 MG
  7. PREVASTATIN [Concomitant]
     Indication: CARDIAC DISORDER
     Dosage: 20 MG
  8. SYNTHROID [Concomitant]
     Indication: THYROID DISORDER
     Dosage: 0.15 MG

REACTIONS (3)
  - DYSPEPSIA [None]
  - CHEST DISCOMFORT [None]
  - FLATULENCE [None]
